FAERS Safety Report 6996752-7 (Version None)
Quarter: 2010Q3

REPORT INFORMATION
  Report Type: 
  Country: None (occurrence: None)
  Receive Date: 20100918
  Receipt Date: 20090610
  Transmission Date: 20110219
  Serious: No
  Sender: FDA-Public Use
  Company Number: US-WYE-H09712309

PATIENT
  Sex: Female
  Weight: 65.83 kg

DRUGS (2)
  1. EFFEXOR XR [Suspect]
     Indication: ANXIETY
     Route: 048
     Dates: start: 20050101, end: 20070101
  2. EFFEXOR XR [Suspect]
     Route: 048
     Dates: start: 20080801, end: 20090527

REACTIONS (3)
  - ERYTHEMA [None]
  - SENSORY DISTURBANCE [None]
  - SPIDER VEIN [None]
